FAERS Safety Report 6990041-2 (Version None)
Quarter: 2010Q3

REPORT INFORMATION
  Report Type: 
  Country: None (occurrence: None)
  Receive Date: 20100916
  Receipt Date: 20100401
  Transmission Date: 20110219
  Serious: Yes (Other)
  Sender: FDA-Public Use
  Company Number: BR-PFIZER INC-2010039483

PATIENT
  Sex: Female

DRUGS (2)
  1. LYRICA [Suspect]
     Dosage: 2 TABLETS OF 75 MG, TWICE DAILY
     Route: 048
     Dates: start: 20100226
  2. LYRICA [Suspect]
     Dosage: 150 MG, 2X/DAY
     Route: 048
     Dates: start: 20100319

REACTIONS (3)
  - FATIGUE [None]
  - FIBROMYALGIA [None]
  - POOR QUALITY SLEEP [None]
